FAERS Safety Report 5669137-3 (Version None)
Quarter: 2008Q1

REPORT INFORMATION
  Report Type: 
  Country: None (occurrence: None)
  Receive Date: 20080312
  Receipt Date: 20080312
  Transmission Date: 20080703
  Serious: Yes (Other)
  Sender: FDA-Public Use
  Company Number: None

PATIENT
  Age: 63 Year
  Sex: Female
  Weight: 103.7 kg

DRUGS (21)
  1. FENTANYL [Suspect]
     Indication: FIBROMYALGIA
     Dosage: 50  MCG/HR Q3DAYS TOP
     Route: 061
     Dates: start: 20071110, end: 20071113
  2. FENTANYL [Suspect]
     Indication: PAIN
     Dosage: 50  MCG/HR Q3DAYS TOP
     Route: 061
     Dates: start: 20071110, end: 20071113
  3. FENTANYL [Suspect]
     Dosage: 25 MCG/HR Q3DAYS TOP
     Route: 061
     Dates: start: 20071115, end: 20071116
  4. ACETAMINOPHEN AND HYDROCODONE BITARTRATE [Concomitant]
  5. ALPRAZOLAM [Concomitant]
  6. CALCIUM CARBONATE [Concomitant]
  7. DULOXETINE [Concomitant]
  8. ENOXAPARIN SODIUM [Concomitant]
  9. VYTORIN [Concomitant]
  10. HYDROCORTISONE [Concomitant]
  11. HUMULIN 70/30 [Concomitant]
  12. REGULAR INSULIN [Concomitant]
  13. XALATAN [Concomitant]
  14. LEVETIRACETAM [Concomitant]
  15. LIDODERM [Concomitant]
  16. MAGNESIUM LACTATE [Concomitant]
  17. OMEPRAZOLE [Concomitant]
  18. ONDANSETRON [Concomitant]
  19. POTASSIUM SUPPLEMENTATION [Concomitant]
  20. FLORASTOR [Concomitant]
  21. VANCOMYCIN [Concomitant]

REACTIONS (6)
  - DYSARTHRIA [None]
  - LETHARGY [None]
  - NAUSEA [None]
  - RESPIRATORY DEPRESSION [None]
  - TACHYCARDIA [None]
  - VOMITING [None]
